FAERS Safety Report 4395832-2 (Version None)
Quarter: 2004Q3

REPORT INFORMATION
  Report Type: 
  Country: None (occurrence: None)
  Receive Date: 20040707
  Receipt Date: 20040621
  Transmission Date: 20050211
  Serious: Yes (Other)
  Sender: FDA-Public Use
  Company Number: FR-JNJFOC-20040602727

PATIENT
  Age: 51 Year
  Sex: Male
  Weight: 62 kg

DRUGS (3)
  1. RISPERDAL CONSTA [Suspect]
     Indication: SCHIZOAFFECTIVE DISORDER
     Dosage: 25 MG, 1 IN 14 DAY, INTRA-MUSCULAR
     Route: 030
     Dates: start: 20040510
  2. RISPERDAL [Suspect]
     Indication: SCHIZOAFFECTIVE DISORDER
     Dosage: 4 MG, IN 1 DAY ORAL
     Route: 048
     Dates: start: 20040401
  3. TERCIAN (CYAMEMAZINE) [Suspect]
     Indication: ANXIETY
     Dosage: 50 MG, IN 1 DAY, INTRA-MUSCULAR
     Route: 030
     Dates: start: 20040601, end: 20040601

REACTIONS (2)
  - ANXIETY [None]
  - GRAND MAL CONVULSION [None]
